FAERS Safety Report 15438247 (Version 2)
Quarter: 2019Q1

REPORT INFORMATION
  Report Type: Spontaneous
  Country: US (occurrence: US)
  Receive Date: 20180928
  Receipt Date: 20190105
  Transmission Date: 20190417
  Serious: No
  Sender: FDA-Public Use
  Company Number: US-BIOGEN-2018BI00615052

PATIENT
  Age: 36 Year
  Sex: Female
  Weight: 59.02 kg

DRUGS (3)
  1. TECFIDERA [Suspect]
     Active Substance: DIMETHYL FUMARATE
     Route: 048
     Dates: start: 20181219
  2. TECFIDERA [Suspect]
     Active Substance: DIMETHYL FUMARATE
     Dosage: MAINTENANCE DOSE
     Route: 048
     Dates: start: 20180719
  3. TECFIDERA [Suspect]
     Active Substance: DIMETHYL FUMARATE
     Indication: MULTIPLE SCLEROSIS
     Dosage: STARTER DOSE
     Route: 048
     Dates: start: 20180717, end: 20180725

REACTIONS (16)
  - Vertigo [Unknown]
  - Gait inability [Unknown]
  - Decreased appetite [Unknown]
  - Abdominal pain upper [Not Recovered/Not Resolved]
  - Hot flush [Unknown]
  - Product dose omission [Recovered/Resolved]
  - Rash pruritic [Not Recovered/Not Resolved]
  - Stress [Recovered/Resolved]
  - Gastric disorder [Unknown]
  - Hypoaesthesia [Recovered/Resolved]
  - Nausea [Not Recovered/Not Resolved]
  - Hypersensitivity [Recovered/Resolved]
  - Pain [Unknown]
  - Visual impairment [Not Recovered/Not Resolved]
  - Scratch [Unknown]
  - Flushing [Not Recovered/Not Resolved]

NARRATIVE: CASE EVENT DATE: 2018
